FAERS Safety Report 6484381-3 (Version None)
Quarter: 2009Q4

REPORT INFORMATION
  Report Type: 
  Country: None (occurrence: None)
  Receive Date: 20091209
  Receipt Date: 20091130
  Transmission Date: 20100525
  Serious: Yes (Other)
  Sender: FDA-Public Use
  Company Number: US-CELGENEUS-163-21880-09120258

PATIENT
  Sex: Female

DRUGS (3)
  1. REVLIMID [Suspect]
     Indication: MULTIPLE MYELOMA
     Route: 048
     Dates: start: 20090801
  2. REVLIMID [Suspect]
     Route: 048
     Dates: start: 20080617
  3. REVLIMID [Suspect]
     Route: 048
     Dates: start: 20080801

REACTIONS (3)
  - AMNESIA [None]
  - DEMENTIA [None]
  - FATIGUE [None]
